FAERS Safety Report 8215175-6 (Version None)
Quarter: 2012Q1

REPORT INFORMATION
  Report Type: 
  Country: None (occurrence: None)
  Receive Date: 20120229
  Receipt Date: 20110328
  Transmission Date: 20120608
  Serious: Yes (Hospitalization)
  Sender: FDA-Public Use
  Company Number: PHHY2011US25715

PATIENT
  Age: 50 Year
  Sex: Male
  Weight: 75 kg

DRUGS (3)
  1. NEORAL [Suspect]
     Indication: LIVER TRANSPLANT
     Dosage: 600 MG, ORAL
     Route: 048
     Dates: start: 20080811
  2. NEORAL [Suspect]
     Indication: PROPHYLAXIS AGAINST TRANSPLANT REJECTION
     Dosage: 600 MG, ORAL
     Route: 048
     Dates: start: 20080811
  3. CELLCEPT [Concomitant]

REACTIONS (2)
  - LUNG INFECTION [None]
  - LOWER RESPIRATORY TRACT INFECTION FUNGAL [None]
